FAERS Safety Report 9919607 (Version 2)
Quarter: 2014Q2

REPORT INFORMATION
  Report Type: Report from Study
  Country: US (occurrence: US)
  Receive Date: 20140224
  Receipt Date: 20140414
  Transmission Date: 20141212
  Serious: Yes (Hospitalization, Other)
  Sender: FDA-Public Use
  Company Number: US-US-EMD SERONO, INC.-7270529

PATIENT
  Age: 23 Year
  Sex: Male

DRUGS (1)
  1. REBIF [Suspect]
     Indication: MULTIPLE SCLEROSIS
     Route: 058
     Dates: start: 20120411

REACTIONS (7)
  - Influenza [Recovered/Resolved]
  - Immune system disorder [Unknown]
  - Multiple sclerosis relapse [Recovered/Resolved]
  - Migraine [Recovering/Resolving]
  - Central nervous system lesion [Recovered/Resolved]
  - Malaise [Not Recovered/Not Resolved]
  - Pain [Not Recovered/Not Resolved]
